FAERS Safety Report 4621918-0 (Version None)
Quarter: 2005Q1

REPORT INFORMATION
  Report Type: 
  Country: None (occurrence: None)
  Receive Date: 20050329
  Receipt Date: 20050304
  Transmission Date: 20050727
  Serious: Yes (Hospitalization)
  Sender: FDA-Public Use
  Company Number: DE-GLAXOSMITHKLINE-D0046073A

PATIENT
  Age: 64 Year
  Sex: Female

DRUGS (2)
  1. QUILONUM RETARD [Suspect]
     Indication: MANIA
     Dosage: 1TAB TWICE PER DAY
     Route: 065
  2. PARACETAMOL [Suspect]
     Indication: PAIN
     Dosage: 10G PER DAY
     Route: 048
     Dates: end: 20050302

REACTIONS (9)
  - ASTERIXIS [None]
  - DELIRIUM [None]
  - DEPRESSED LEVEL OF CONSCIOUSNESS [None]
  - DRUG ABUSER [None]
  - DRUG LEVEL INCREASED [None]
  - HAEMODIALYSIS [None]
  - OVERDOSE [None]
  - SOMNOLENCE [None]
  - THERAPEUTIC AGENT TOXICITY [None]
